FAERS Safety Report 5439510-7 (Version None)
Quarter: 2007Q3

REPORT INFORMATION
  Report Type: 
  Country: None (occurrence: None)
  Receive Date: 20070831
  Receipt Date: 20070824
  Transmission Date: 20080115
  Serious: Yes (Hospitalization, Other)
  Sender: FDA-Public Use
  Company Number: DE-BRISTOL-MYERS SQUIBB COMPANY-13731625

PATIENT
  Age: 74 Year
  Sex: Male

DRUGS (4)
  1. CETUXIMAB [Suspect]
     Indication: METASTATIC GASTRIC CANCER
     Dosage: 200 MG/M2, 1 IN 1 WEEK 06-MAR-07-ONGOING
     Route: 042
     Dates: start: 20061211
  2. IRINOTECAN HCL [Suspect]
     Indication: METASTATIC GASTRIC CANCER
     Dosage: 06-MAR-07 TO ONGOING
     Route: 042
     Dates: start: 20061211
  3. FOLINIC ACID [Suspect]
     Indication: METASTATIC GASTRIC CANCER
     Dosage: INTERRUPTED FROM 14-FEB-2007 TO 05-MAR-2007
     Route: 042
     Dates: start: 20061211
  4. FLUOROURACIL [Suspect]
     Indication: METASTATIC GASTRIC CANCER
     Dosage: INTERRUPTED FROM 14-FEB-2007 TO 05-MAR-2007
     Route: 042
     Dates: start: 20061211

REACTIONS (2)
  - PULMONARY EMBOLISM [None]
  - PYREXIA [None]
